FAERS Safety Report 11438477 (Version 1)
Quarter: 2015Q3

REPORT INFORMATION
  Report Type: Spontaneous
  Country: US (occurrence: US)
  Receive Date: 20150901
  Receipt Date: 20150901
  Transmission Date: 20151125
  Serious: No
  Sender: FDA-Public Use
  Company Number: US-ROCHE-1107840

PATIENT
  Age: 54 Year
  Sex: Female

DRUGS (3)
  1. VICTRELIS [Suspect]
     Active Substance: BOCEPREVIR
     Indication: CHRONIC HEPATITIS C
     Route: 048
     Dates: start: 20120810
  2. RIBASPHERE [Suspect]
     Active Substance: RIBAVIRIN
     Indication: CHRONIC HEPATITIS C
     Dosage: DIVIDED DOSAGE 400/400. REPORTED AS, RIBASPHERE RIBAPAK
     Route: 065
     Dates: start: 20120721
  3. PEGASYS [Suspect]
     Active Substance: PEGINTERFERON ALFA-2A
     Indication: CHRONIC HEPATITIS C
     Route: 058
     Dates: start: 20120721

REACTIONS (8)
  - Influenza [Unknown]
  - White blood cell count decreased [Unknown]
  - Platelet count decreased [Unknown]
  - Feeling abnormal [Unknown]
  - Muscle spasms [Unknown]
  - Fatigue [Unknown]
  - Haemoglobin decreased [Unknown]
  - Haemorrhage [Unknown]

NARRATIVE: CASE EVENT DATE: 20120822
